FAERS Safety Report 11284250 (Version 1)
Quarter: 2015Q3

REPORT INFORMATION
  Report Type: Spontaneous
  Country: DE (occurrence: DE)
  Receive Date: 20150720
  Receipt Date: 20150720
  Transmission Date: 20151125
  Serious: Yes (Hospitalization)
  Sender: FDA-Public Use
  Company Number: DE-SHIRE-DE201504297

PATIENT
  Age: 46 Year
  Sex: Female
  Weight: 55.5 kg

DRUGS (5)
  1. DIOVAN [Concomitant]
     Active Substance: VALSARTAN
     Indication: HYPERTENSION
     Dosage: UNK (160), 1X/DAY:QD
     Route: 065
  2. MIMPARA [Concomitant]
     Active Substance: CINACALCET HYDROCHLORIDE
     Indication: HYPERPARATHYROIDISM
     Dosage: UNK (60), 1X/DAY:QD
     Route: 065
  3. EINSALPHA [Concomitant]
     Indication: HYPERPARATHYROIDISM
     Dosage: UNK (0.25), 1X/DAY:QD
     Route: 065
  4. EUTHYROX [Concomitant]
     Active Substance: LEVOTHYROXINE SODIUM
     Indication: HYPOTHYROIDISM
     Dosage: UNK (25), 1X/DAY:QD
     Route: 065
  5. FOSRENOL [Suspect]
     Active Substance: LANTHANUM CARBONATE
     Indication: PRODUCT USED FOR UNKNOWN INDICATION
     Dosage: 750 MG, 3X/DAY:TID
     Route: 048

REACTIONS (2)
  - Gingivitis [Unknown]
  - Giant cell epulis [Recovered/Resolved]

NARRATIVE: CASE EVENT DATE: 201406
